FAERS Safety Report 17890460 (Version 1)
Quarter: 2020Q2

REPORT INFORMATION
  Report Type: Spontaneous
  Country: US (occurrence: US)
  Receive Date: 20200612
  Receipt Date: 20200612
  Transmission Date: 20200714
  Serious: Yes (Other)
  Sender: FDA-Public Use
  Company Number: US-FRESENIUS KABI-FK202005850

PATIENT
  Age: 59 Year
  Sex: Male

DRUGS (4)
  1. WARFARIN [Suspect]
     Active Substance: WARFARIN
     Indication: ANTICOAGULANT THERAPY
     Dosage: ONE DOSE WITHHELD
     Route: 048
  2. BIVALIRUDIN (MANUFACTURER UNKNOWN) [Suspect]
     Active Substance: BIVALIRUDIN
     Indication: ANTICOAGULANT THERAPY
     Route: 040
  3. BIVALIRUDIN (MANUFACTURER UNKNOWN) [Suspect]
     Active Substance: BIVALIRUDIN
     Route: 042
  4. BIVALIRUDIN (MANUFACTURER UNKNOWN) [Suspect]
     Active Substance: BIVALIRUDIN
     Route: 040

REACTIONS (2)
  - Haemorrhage [Recovered/Resolved]
  - Pericardial effusion [Recovered/Resolved]
